FAERS Safety Report 16745803 (Version 2)
Quarter: 2019Q3

REPORT INFORMATION
  Report Type: Spontaneous
  Country: US (occurrence: US)
  Receive Date: 20190827
  Receipt Date: 20190920
  Transmission Date: 20191005
  Serious: No
  Sender: FDA-Public Use
  Company Number: US-SA-2019SA217596

PATIENT
  Age: 41 Year
  Sex: Female

DRUGS (7)
  1. SINGULAIR [Concomitant]
     Active Substance: MONTELUKAST SODIUM
  2. CARDIZEM LA [Concomitant]
     Active Substance: DILTIAZEM HYDROCHLORIDE
  3. SPIRIVA [Concomitant]
     Active Substance: TIOTROPIUM BROMIDE MONOHYDRATE
  4. PROAIR HFA [Concomitant]
     Active Substance: ALBUTEROL SULFATE
  5. PREDNISONE. [Concomitant]
     Active Substance: PREDNISONE
  6. DUPIXENT [Suspect]
     Active Substance: DUPILUMAB
     Indication: ASTHMA
     Dosage: 300 MG, QOW
     Route: 058
     Dates: start: 20190519
  7. BREO ELLIPTA [Concomitant]
     Active Substance: FLUTICASONE FUROATE\VILANTEROL TRIFENATATE

REACTIONS (1)
  - Asthma [Not Recovered/Not Resolved]

NARRATIVE: CASE EVENT DATE: 20190724
